FAERS Safety Report 9073773 (Version 1)
Quarter: 2013Q1

REPORT INFORMATION
  Report Type: Report from Study
  Country: US (occurrence: US)
  Receive Date: 20130129
  Receipt Date: 20130129
  Transmission Date: 20140127
  Serious: No
  Sender: FDA-Public Use
  Company Number: US-ABBOTT-12P-163-0933732-00

PATIENT
  Age: 59 Year
  Sex: Female

DRUGS (12)
  1. HUMIRA 40 MG/0.8 ML PEN [Suspect]
     Indication: RHEUMATOID ARTHRITIS
     Route: 058
     Dates: start: 20120323
  2. LEVOTHYROXINE [Concomitant]
     Indication: PRODUCT USED FOR UNKNOWN INDICATION
  3. PLAQUENIL [Concomitant]
     Indication: PRODUCT USED FOR UNKNOWN INDICATION
  4. NEXIUM [Concomitant]
     Indication: PRODUCT USED FOR UNKNOWN INDICATION
  5. AZOR [Concomitant]
     Indication: PRODUCT USED FOR UNKNOWN INDICATION
  6. FOLIC ACID [Concomitant]
     Indication: PRODUCT USED FOR UNKNOWN INDICATION
  7. ESTROGEN REPLACEMENT TABLETS [Concomitant]
     Indication: PRODUCT USED FOR UNKNOWN INDICATION
  8. SULFACETAMIDE [Concomitant]
     Indication: PRODUCT USED FOR UNKNOWN INDICATION
  9. GENTEEL [Concomitant]
     Indication: PRODUCT USED FOR UNKNOWN INDICATION
  10. MULTIVITAMIN [Concomitant]
     Indication: PRODUCT USED FOR UNKNOWN INDICATION
  11. TUMS [Concomitant]
     Indication: PRODUCT USED FOR UNKNOWN INDICATION
  12. EMERGEN-C [Concomitant]
     Indication: PRODUCT USED FOR UNKNOWN INDICATION

REACTIONS (9)
  - Throat tightness [Not Recovered/Not Resolved]
  - Cough [Not Recovered/Not Resolved]
  - Fatigue [Not Recovered/Not Resolved]
  - Exposure via partner [Not Recovered/Not Resolved]
  - Viral infection [Not Recovered/Not Resolved]
  - Cough [Not Recovered/Not Resolved]
  - Rheumatoid arthritis [Not Recovered/Not Resolved]
  - Local swelling [Not Recovered/Not Resolved]
  - Drug dose omission [Not Recovered/Not Resolved]
